FAERS Safety Report 10443350 (Version 4)
Quarter: 2015Q1

REPORT INFORMATION
  Report Type: Report from Study
  Country: CA (occurrence: CA)
  Receive Date: 20140910
  Receipt Date: 20150220
  Transmission Date: 20150720
  Serious: Yes (Other)
  Sender: FDA-Public Use
  Company Number: CA-ROCHE-1186023

PATIENT
  Age: 53 Year
  Sex: Female
  Weight: 67 kg

DRUGS (18)
  1. ACTEMRA [Suspect]
     Active Substance: TOCILIZUMAB
     Route: 042
     Dates: start: 20130327
  2. ACTEMRA [Suspect]
     Active Substance: TOCILIZUMAB
     Route: 042
     Dates: start: 20130121
  3. ACTEMRA [Suspect]
     Active Substance: TOCILIZUMAB
     Route: 042
     Dates: start: 20130529
  4. CELEBREX [Concomitant]
     Active Substance: CELECOXIB
  5. EURO-FOLIC [Concomitant]
  6. FERROUS SULFATE [Concomitant]
     Active Substance: FERROUS SULFATE\FERROUS SULFATE, DRIED
  7. PREMARIN CREAM [Concomitant]
  8. ACTEMRA [Suspect]
     Active Substance: TOCILIZUMAB
     Indication: RHEUMATOID ARTHRITIS
     Route: 042
     Dates: start: 20121016, end: 20130724
  9. METHOTREXATE [Concomitant]
     Active Substance: METHOTREXATE
  10. RITUXAN [Suspect]
     Active Substance: RITUXIMAB
     Indication: RHEUMATOID ARTHRITIS
     Dosage: FREQUENCY: DAY 1 AND DAY 15?LAST DOSE ON 30/APR/2014.
     Route: 042
     Dates: start: 20130926
  11. CYKLOKAPRON [Concomitant]
     Active Substance: TRANEXAMIC ACID
  12. NAPROXEN. [Concomitant]
     Active Substance: NAPROXEN
  13. FOLIC ACID. [Concomitant]
     Active Substance: FOLIC ACID
  14. METHYLPREDNISOLONE. [Concomitant]
     Active Substance: METHYLPREDNISOLONE
     Indication: PREMEDICATION
     Route: 042
     Dates: start: 20130926
  15. ACTEMRA [Suspect]
     Active Substance: TOCILIZUMAB
     Route: 042
     Dates: start: 20130424
  16. ACTEMRA [Suspect]
     Active Substance: TOCILIZUMAB
     Route: 042
     Dates: end: 20130724
  17. ACETAMINOPHEN. [Concomitant]
     Active Substance: ACETAMINOPHEN
     Indication: PREMEDICATION
     Route: 048
     Dates: start: 20130926
  18. ACTEMRA [Suspect]
     Active Substance: TOCILIZUMAB
     Route: 042
     Dates: start: 20130626

REACTIONS (10)
  - Anaemia [Not Recovered/Not Resolved]
  - Fibroma [Recovered/Resolved]
  - Vulvovaginal discomfort [Unknown]
  - Uterine disorder [Unknown]
  - Gastric disorder [Unknown]
  - Arthralgia [Not Recovered/Not Resolved]
  - Menorrhagia [Unknown]
  - General physical condition abnormal [Recovered/Resolved]
  - Infusion related reaction [Unknown]
  - Drug effect decreased [Unknown]

NARRATIVE: CASE EVENT DATE: 201211
